FAERS Safety Report 7660858-X (Version None)
Quarter: 2011Q3

REPORT INFORMATION
  Report Type: 
  Country: None (occurrence: None)
  Receive Date: 20110805
  Receipt Date: 20101110
  Transmission Date: 20111222
  Serious: No
  Sender: FDA-Public Use
  Company Number: US-ABBOTT-10P-163-0684566-00

PATIENT
  Sex: Female
  Weight: 81.72 kg

DRUGS (2)
  1. UNKOWN INJECTIONS INTO EYE [Concomitant]
     Indication: MACULAR DEGENERATION
  2. NIASPAN [Suspect]
     Indication: DYSLIPIDAEMIA
     Dosage: AT BEDTIME
     Route: 048
     Dates: start: 20101016, end: 20101106

REACTIONS (5)
  - INSOMNIA [None]
  - RASH PAPULAR [None]
  - OEDEMA PERIPHERAL [None]
  - PRURITUS [None]
  - RASH [None]
